FAERS Safety Report 6631775-9 (Version None)
Quarter: 2010Q1

REPORT INFORMATION
  Report Type: 
  Country: None (occurrence: None)
  Receive Date: 20100310
  Receipt Date: 20100302
  Transmission Date: 20100710
  Serious: Yes (Hospitalization, Other)
  Sender: FDA-Public Use
  Company Number: HCDA20100002

PATIENT
  Age: 27 Year
  Sex: Female

DRUGS (1)
  1. ACETAMINOPHEN AND HYDROCODONE BITARTRATE [Suspect]
     Indication: BACK PAIN
     Dosage: 7.5/500 MG, QID, INTRA-NASAL

REACTIONS (4)
  - DRUG ABUSE [None]
  - FISTULA [None]
  - FOREIGN BODY [None]
  - INTENTIONAL DRUG MISUSE [None]
